FAERS Safety Report 18264941 (Version 1)
Quarter: 2020Q3

REPORT INFORMATION
  Report Type: Spontaneous
  Country: FR (occurrence: FR)
  Receive Date: 20200914
  Receipt Date: 20200914
  Transmission Date: 20201103
  Serious: Yes (Hospitalization)
  Sender: FDA-Public Use
  Company Number: FR-MYLANLABS-2020M1077622

PATIENT
  Age: 68 Year
  Sex: Male
  Weight: 69 kg

DRUGS (2)
  1. MYLAN?LANSOPRAZOLE [Suspect]
     Active Substance: LANSOPRAZOLE
     Indication: GASTRITIS
     Dosage: 30 MILLIGRAM, QD
     Route: 048
     Dates: start: 20200708
  2. IMIPENEM CILASTATINE MYLAN [Suspect]
     Active Substance: IMIPENEM
     Indication: KLEBSIELLA SEPSIS
     Dosage: 1500 MILLIGRAM, QD
     Route: 041
     Dates: start: 20200717, end: 20200718

REACTIONS (2)
  - Drug reaction with eosinophilia and systemic symptoms [Unknown]
  - Acute kidney injury [Unknown]

NARRATIVE: CASE EVENT DATE: 20200718
